FAERS Safety Report 9539627 (Version 1)
Quarter: 2013Q2

REPORT INFORMATION
  Report Type: Spontaneous
  Country: US (occurrence: None)
  Receive Date: 20130521
  Receipt Date: 20130521
  Transmission Date: 20140414
  Serious: Yes (Other)
  Sender: FDA-Public Use
  Company Number: 1000042188

PATIENT
  Age: 69 Year
  Sex: Male

DRUGS (3)
  1. TUDORZA PRESSAIR [Suspect]
     Indication: CHRONIC OBSTRUCTIVE PULMONARY DISEASE
     Dosage: 800 MCG (400 MCG, 2 IN 1 D), RESPIRATORY (INHALATION)
     Route: 055
     Dates: start: 20130117, end: 20130120
  2. ALPRAZOLAM (ALPRAZOLAM) (ALPRAZOLAM) [Concomitant]
  3. CLONAZEPAM (CLONAZEPAM) (CLONAZEPAM) [Concomitant]

REACTIONS (2)
  - Headache [None]
  - Foreign body sensation in eyes [None]
